FAERS Safety Report 9781200 (Version 1)
Quarter: 2013Q4

REPORT INFORMATION
  Report Type: Spontaneous
  Country: US (occurrence: None)
  Receive Date: 20131223
  Receipt Date: 20131223
  Transmission Date: 20140711
  Serious: Yes (Disabling)
  Sender: FDA-Public Use
  Company Number: None

PATIENT
  Sex: Female

DRUGS (1)
  1. MIRENA [Suspect]
     Indication: CONTRACEPTION
     Dosage: INSERTED INTO UTERUS
     Dates: start: 201109, end: 201202

REACTIONS (6)
  - Visual field defect [None]
  - Vision blurred [None]
  - Migraine [None]
  - Memory impairment [None]
  - Papilloedema [None]
  - Benign intracranial hypertension [None]
